FAERS Safety Report 8561766-2 (Version None)
Quarter: 2012Q3

REPORT INFORMATION
  Report Type: 
  Country: None (occurrence: None)
  Receive Date: 20120802
  Receipt Date: 20120730
  Transmission Date: 20120928
  Serious: Yes (Hospitalization)
  Sender: FDA-Public Use
  Company Number: PHHY2012ES051193

PATIENT
  Age: 12 Year
  Sex: Female

DRUGS (1)
  1. DOXYCYCLINE HCL [Suspect]
     Indication: RELAPSING FEVER
     Route: 042

REACTIONS (13)
  - CONJUNCTIVAL HAEMORRHAGE [None]
  - HYPOTENSION [None]
  - HYPERHIDROSIS [None]
  - JARISCH-HERXHEIMER REACTION [None]
  - DEPRESSED LEVEL OF CONSCIOUSNESS [None]
  - PALLOR [None]
  - SINUS TACHYCARDIA [None]
  - TACHYCARDIA [None]
  - BRADYCARDIA [None]
  - VOMITING [None]
  - CARDIOGENIC SHOCK [None]
  - PULMONARY OEDEMA [None]
  - DYSPNOEA [None]
